FAERS Safety Report 13855719 (Version 2)
Quarter: 2017Q3

REPORT INFORMATION
  Report Type: Report from Study
  Country: CA (occurrence: CA)
  Receive Date: 20170810
  Receipt Date: 20170822
  Transmission Date: 20171127
  Serious: Yes (Hospitalization, Other)
  Sender: FDA-Public Use
  Company Number: CA-BRISTOL-MYERS SQUIBB COMPANY-BMS-2017-054919

PATIENT
  Age: 60 Year
  Sex: Male

DRUGS (2)
  1. NIVOLUMAB [Suspect]
     Active Substance: NIVOLUMAB
     Indication: SQUAMOUS CELL CARCINOMA OF HEAD AND NECK
     Dosage: 3 MG/KG, Q2WK
     Route: 065
     Dates: start: 20170525
  2. NIVOLUMAB [Suspect]
     Active Substance: NIVOLUMAB
     Indication: PRODUCT USED FOR UNKNOWN INDICATION
     Dosage: 260 MG, UNK(Q2 SEMINARES)
     Route: 042
     Dates: start: 20170526

REACTIONS (7)
  - Bursitis [Recovering/Resolving]
  - Dry mouth [Not Recovered/Not Resolved]
  - Fatigue [Unknown]
  - Cheilitis [Recovered/Resolved]
  - Hospitalisation [Unknown]
  - Somnolence [Unknown]
  - Cellulitis [Recovering/Resolving]

NARRATIVE: CASE EVENT DATE: 20170619
